FAERS Safety Report 10247473 (Version 1)
Quarter: 2014Q1

REPORT INFORMATION
  Report Type: Spontaneous
  Country: US (occurrence: None)
  Receive Date: 20140306
  Receipt Date: 20140306
  Transmission Date: 20141002
  Serious: Yes (Other)
  Sender: FDA-Public Use
  Company Number: 163-21880-13033539

PATIENT
  Age: 53 Year
  Sex: Female

DRUGS (23)
  1. REVLIMID [Suspect]
     Indication: PLASMA CELL MYELOMA
     Dosage: 25 MG , 1 IN 1 D, PO  05/16/2012 - UNKNOWN
     Route: 048
     Dates: start: 20120516
  2. FLUTICASONE PROP (FLUTICASONE PROPIONATE) (SPRAY NOT INHALATION) [Concomitant]
  3. DEXAMETHASONE (UNKNOWN) [Concomitant]
  4. ASMANEX TWISTHALER (MOMETASONE FUROATE) (INHALANT) [Concomitant]
  5. TOPIRAMATE (UNKNOWN) [Concomitant]
  6. NORTRIPTYLINE HCL (NORTRIPTYLINE HYDROCHLORIDE) (UNKNOWN) [Concomitant]
  7. ESTRADIOL (UNKNOWN) [Concomitant]
  8. SUPER B COMPLEX-C (BEVITOTAL COMP.) (UNKNOWN) [Concomitant]
  9. COQ10 (UBIDECARENONE) (UNKNOWN) [Concomitant]
  10. PROAIR HFA (SALBUTAMOL SULFATE) (INHALANT) [Concomitant]
  11. RANITIDINE (UNKNOWN) [Concomitant]
  12. LEVOCARNITINE (UNKNOWN) [Concomitant]
  13. VITAMIN E (TOCOPHEROL) (UNKNOWN) [Concomitant]
  14. FISH OIL (UNKNOWN) [Concomitant]
  15. VITAMIN D3 (COLECALCIFEROL) (UNKNOWN) [Concomitant]
  16. BALANCE B-50 (NATUREMADE BALANCED B-10) (UNKNOWN) [Concomitant]
  17. DIAZEPAM (UNKNOWN) [Concomitant]
  18. ASPIRIN (ACETYLSALICYLIC ACID) (ENTERIC-COATED TABLET) [Concomitant]
  19. POMEGRANATE-EGCG + GRAPE SEED (POMEGRANATE + MANGOSTEEN) (UNKNOWN) [Concomitant]
  20. AXERT (ALMOTRIPTAN MALATE) (UNKNOWN) [Concomitant]
  21. LEVETIRACETAM (UNKNOWN) [Concomitant]
  22. LISINOPRIL (UNKNOWN) [Concomitant]
  23. PROMETHAZINE (UNKNOWN) [Concomitant]

REACTIONS (4)
  - Melaena [None]
  - Oedema [None]
  - Dry skin [None]
  - Dizziness [None]
